FAERS Safety Report 12678037 (Version 3)
Quarter: 2016Q4

REPORT INFORMATION
  Report Type: Spontaneous
  Country: CZ (occurrence: CZ)
  Receive Date: 20160823
  Receipt Date: 20161111
  Transmission Date: 20170207
  Serious: Yes (Hospitalization, Other)
  Sender: FDA-Public Use
  Company Number: CZ-FERRINGPH-2016FE03828

PATIENT

DRUGS (4)
  1. DESMOPRESSIN [Suspect]
     Active Substance: DESMOPRESSIN
     Indication: DIABETES INSIPIDUS
     Dosage: 70 ?G, 3 TIMES DAILY
     Route: 065
  2. DESMOPRESSIN [Suspect]
     Active Substance: DESMOPRESSIN
     Dosage: 30 ?G, 3 TIMES DAILY
     Route: 065
  3. DESMOPRESSIN [Suspect]
     Active Substance: DESMOPRESSIN
     Dosage: 30 ?G, 2 TIMES DAILY
     Route: 065
  4. DESMOPRESSIN [Suspect]
     Active Substance: DESMOPRESSIN
     Dosage: 40 ?G, 3 TIMES DAILY
     Route: 065

REACTIONS (16)
  - Vomiting [Unknown]
  - Altered state of consciousness [Recovered/Resolved]
  - Abdominal pain upper [Unknown]
  - Abnormal behaviour [Unknown]
  - Fatigue [Unknown]
  - Hyponatraemic encephalopathy [Recovering/Resolving]
  - Hypokalaemia [Recovered/Resolved]
  - Water intoxication [Recovered/Resolved]
  - Tremor [Unknown]
  - Headache [Unknown]
  - Blood pressure increased [Unknown]
  - Fluid overload [Recovered/Resolved]
  - Nausea [Unknown]
  - Generalised tonic-clonic seizure [Recovered/Resolved]
  - Coma scale abnormal [Recovered/Resolved]
  - Hyponatraemia [Recovered/Resolved]
